FAERS Safety Report 18551859 (Version 1)
Quarter: 2020Q4

REPORT INFORMATION
  Report Type: Spontaneous
  Country: ES (occurrence: ES)
  Receive Date: 20201126
  Receipt Date: 20201126
  Transmission Date: 20210114
  Serious: Yes (Hospitalization, Other)
  Sender: FDA-Public Use
  Company Number: ES-JNJFOC-20201145863

PATIENT
  Age: 92 Year
  Sex: Female

DRUGS (6)
  1. OMEPRAZOLE. [Concomitant]
     Active Substance: OMEPRAZOLE
     Dosage: 20 MG 56 CAPSULES
  2. VALIUM [Concomitant]
     Active Substance: DIAZEPAM
     Dosage: 10MG AND 25MG TABLETS
  3. LOSARTAN. [Concomitant]
     Active Substance: LOSARTAN
     Dosage: 50MG 28 TABLETS
  4. SERETIDE [Concomitant]
     Active Substance: FLUTICASONE PROPIONATE\SALMETEROL XINAFOATE
  5. DUROGESIC MATRIX [Suspect]
     Active Substance: FENTANYL
     Indication: PAIN
     Dosage: 1 PATCH EVERY 3 DAYS
     Route: 062
     Dates: start: 20200815, end: 20200820
  6. SEGURIL [Concomitant]
     Active Substance: FUROSEMIDE
     Dosage: 40MG AND 30MG TABLETS

REACTIONS (1)
  - Fall [Recovered/Resolved]

NARRATIVE: CASE EVENT DATE: 20200819
